FAERS Safety Report 12287825 (Version 1)
Quarter: 2016Q2

REPORT INFORMATION
  Report Type: Other
  Country: GB (occurrence: GB)
  Receive Date: 20160420
  Receipt Date: 20160420
  Transmission Date: 20160815
  Serious: Yes (Other)
  Sender: FDA-Public Use
  Company Number: GB-MYLANLABS-2016M1015024

PATIENT

DRUGS (10)
  1. CITALOPRAM [Concomitant]
     Active Substance: CITALOPRAM HYDROBROMIDE
     Indication: DEPRESSED MOOD
     Dosage: 1 DF, QD (MORNING)
     Dates: start: 20160114
  2. CERAZETTE                          /00011001/ [Concomitant]
     Active Substance: DESOGESTREL
     Dosage: 1 DF, QD
     Dates: start: 20160201
  3. CYANOCOBALAMIN. [Concomitant]
     Active Substance: CYANOCOBALAMIN
     Dosage: USE AS DIRECTED
     Dates: start: 20150713
  4. DESOGESTREL [Concomitant]
     Active Substance: DESOGESTREL
     Dosage: 1 DF, QD
     Dates: start: 20160211
  5. OMEPRAZOLE MYLAN [Suspect]
     Active Substance: OMEPRAZOLE
     Dosage: UNK
     Dates: start: 20150729
  6. AMITRIPTYLINE HYDROCHLORIDE. [Concomitant]
     Active Substance: AMITRIPTYLINE HYDROCHLORIDE
     Dosage: 10 MG, QD (START WITH 10MG AT NIGHT BUT CAN INCREASE SLOWL...)
     Dates: start: 20160308
  7. TEMAZEPAM. [Concomitant]
     Active Substance: TEMAZEPAM
     Dosage: INTERMITTENTLY AT NIGHT
     Dates: start: 20160211, end: 20160225
  8. HYDROXOCOBALAMIN [Concomitant]
     Active Substance: HYDROXOCOBALAMIN
     Dosage: USE AS DIRECTED
     Dates: start: 20160323
  9. RANITIDINE. [Concomitant]
     Active Substance: RANITIDINE
     Indication: DYSPEPSIA
     Dosage: 1 DF, BID
     Dates: start: 20160311
  10. AMOXICILLIN. [Concomitant]
     Active Substance: AMOXICILLIN
     Indication: ANTIBIOTIC THERAPY
     Dosage: 1 DF, TID
     Dates: start: 20160211, end: 20160218

REACTIONS (3)
  - Vitamin B1 deficiency [Unknown]
  - Nystagmus [Recovering/Resolving]
  - Vertigo [Recovering/Resolving]

NARRATIVE: CASE EVENT DATE: 20150804
